FAERS Safety Report 4334616-8 (Version None)
Quarter: 2004Q1

REPORT INFORMATION
  Report Type: 
  Country: None (occurrence: None)
  Receive Date: 20040329
  Receipt Date: 20031230
  Transmission Date: 20041129
  Serious: No
  Sender: FDA-Public Use
  Company Number: 03P-163-0246043-00

PATIENT
  Age: 65 Year
  Sex: Female

DRUGS (12)
  1. HUMIRA [Suspect]
     Indication: RHEUMATOID ARTHRITIS
     Dosage: 40 MG, 1 IN 2 WK, SUBCUTANEOUS
     Route: 058
     Dates: start: 20030101
  2. ATENOLOL [Concomitant]
  3. INDAPAMIDE [Concomitant]
  4. CELECOXIB [Concomitant]
  5. FOLIC ACID [Concomitant]
  6. POTASSIUM [Concomitant]
  7. METHOTREXATE [Concomitant]
  8. ATORVASTATIN [Concomitant]
  9. ATORVASTATIN [Concomitant]
  10. RALOXIFENE HCL [Concomitant]
  11. CALCIUM [Concomitant]
  12. PREDNISONE [Concomitant]

REACTIONS (3)
  - DIARRHOEA [None]
  - FEELING ABNORMAL [None]
  - INFLUENZA LIKE ILLNESS [None]
